FAERS Safety Report 16279558 (Version 1)
Quarter: 2019Q2

REPORT INFORMATION
  Report Type: Spontaneous
  Country: JP (occurrence: JP)
  Receive Date: 20190507
  Receipt Date: 20190507
  Transmission Date: 20190711
  Serious: Yes (Hospitalization)
  Sender: FDA-Public Use
  Company Number: JP-TEVA-2019-JP-1046959

PATIENT
  Age: 60 Year
  Sex: Female

DRUGS (4)
  1. CYCLOPHOSPHAMIDE. [Suspect]
     Active Substance: CYCLOPHOSPHAMIDE
     Indication: DERMATOMYOSITIS
     Dosage: 500-1000MG BIWEEKLY THERAPY
     Route: 042
  2. CYCLOSPORIN A [Suspect]
     Active Substance: CYCLOSPORINE
     Indication: DERMATOMYOSITIS
     Dosage: 12 HRS IV ADMINISTRATION TO MAINTAIN 1000 NG/ML AT 2 HRS AND 200-300 NG/ML AT TROUGH LEVELS
     Route: 042
  3. PREDNISONE. [Suspect]
     Active Substance: PREDNISONE
     Indication: DERMATOMYOSITIS
     Route: 065
  4. TOFACITINIB [Suspect]
     Active Substance: TOFACITINIB
     Indication: DERMATOMYOSITIS
     Route: 065

REACTIONS (5)
  - Respiratory tract infection bacterial [Recovering/Resolving]
  - Herpes zoster [Recovering/Resolving]
  - Treatment failure [Unknown]
  - Cytomegalovirus infection [Recovering/Resolving]
  - Pancytopenia [Recovering/Resolving]
